FAERS Safety Report 12631423 (Version 2)
Quarter: 2016Q3

REPORT INFORMATION
  Report Type: Spontaneous
  Country: US (occurrence: US)
  Receive Date: 20160808
  Receipt Date: 20160808
  Transmission Date: 20161109
  Serious: No
  Sender: FDA-Public Use
  Company Number: US-BEH-2015053826

PATIENT
  Sex: Female
  Weight: 64 kg

DRUGS (27)
  1. DIPHENHYDRAMINE. [Concomitant]
     Active Substance: DIPHENHYDRAMINE
  2. EPIPEN [Concomitant]
     Active Substance: EPINEPHRINE
     Indication: ANAPHYLACTIC REACTION
  3. LMX [Concomitant]
     Active Substance: LIDOCAINE
  4. IMITREX [Concomitant]
     Active Substance: SUMATRIPTAN SUCCINATE
  5. HIZENTRA [Suspect]
     Active Substance: HUMAN IMMUNOGLOBULIN G
     Indication: IMMUNODEFICIENCY COMMON VARIABLE
     Route: 058
  6. HIZENTRA [Suspect]
     Active Substance: HUMAN IMMUNOGLOBULIN G
     Route: 058
  7. OXYCONTIN [Concomitant]
     Active Substance: OXYCODONE HYDROCHLORIDE
  8. CYMBALTA [Concomitant]
     Active Substance: DULOXETINE HYDROCHLORIDE
  9. ACETAMINOPHEN. [Concomitant]
     Active Substance: ACETAMINOPHEN
  10. AMITRIPTYLINE [Concomitant]
     Active Substance: AMITRIPTYLINE
  11. MULTIVITAMIN [Concomitant]
     Active Substance: VITAMINS
  12. INFED [Concomitant]
     Active Substance: IRON DEXTRAN
  13. CARAFATE [Concomitant]
     Active Substance: SUCRALFATE
  14. NEXIUM [Concomitant]
     Active Substance: ESOMEPRAZOLE MAGNESIUM
  15. PROAIR HFA [Concomitant]
     Active Substance: ALBUTEROL SULFATE
  16. ACYCLOVIR. [Concomitant]
     Active Substance: ACYCLOVIR
  17. LORATADINE. [Concomitant]
     Active Substance: LORATADINE
  18. CALCIUM-MAGNESIUM-ZINC [Concomitant]
  19. AMBIEN [Concomitant]
     Active Substance: ZOLPIDEM TARTRATE
  20. SYNTHROID [Concomitant]
     Active Substance: LEVOTHYROXINE SODIUM
  21. WELLBUTRIN [Concomitant]
     Active Substance: BUPROPION HYDROCHLORIDE
  22. SUDAFED [Concomitant]
     Active Substance: PSEUDOEPHEDRINE HYDROCHLORIDE
  23. VALIUM [Concomitant]
     Active Substance: DIAZEPAM
  24. FISH OIL [Concomitant]
     Active Substance: FISH OIL
  25. MELOXICAM. [Concomitant]
     Active Substance: MELOXICAM
  26. PROVIGIL [Concomitant]
     Active Substance: MODAFINIL
  27. PERCOCET [Concomitant]
     Active Substance: ACETAMINOPHEN\OXYCODONE HYDROCHLORIDE

REACTIONS (5)
  - Back pain [Unknown]
  - Hypotension [Unknown]
  - Headache [Unknown]
  - Nausea [Unknown]
  - Dry mouth [Unknown]
